FAERS Safety Report 20829793 (Version 3)
Quarter: 2022Q3

REPORT INFORMATION
  Report Type: Spontaneous
  Country: US (occurrence: US)
  Receive Date: 20220513
  Receipt Date: 20220718
  Transmission Date: 20221027
  Serious: No
  Sender: FDA-Public Use
  Company Number: US-BEH-2022145272

PATIENT
  Age: 6 Year
  Sex: Male

DRUGS (3)
  1. HIZENTRA [Suspect]
     Active Substance: HUMAN IMMUNOGLOBULIN G
     Indication: Hypogammaglobulinaemia
     Dosage: 8 GRAM, QOW
     Route: 042
     Dates: start: 202110
  2. HIZENTRA [Suspect]
     Active Substance: HUMAN IMMUNOGLOBULIN G
     Indication: Severe myoclonic epilepsy of infancy
     Dosage: 10 MILLIGRAM
     Route: 065
  3. HIZENTRA [Suspect]
     Active Substance: HUMAN IMMUNOGLOBULIN G
     Indication: Epilepsy

REACTIONS (8)
  - Ill-defined disorder [Unknown]
  - Underdose [Unknown]
  - No adverse event [Unknown]
  - Incorrect product administration duration [Unknown]
  - No adverse event [Unknown]
  - Off label use [Unknown]
  - No adverse event [Unknown]
  - Off label use [Unknown]
